FAERS Safety Report 21161409 (Version 1)
Quarter: 2022Q3

REPORT INFORMATION
  Report Type: Spontaneous
  Country: IT (occurrence: IT)
  Receive Date: 20220802
  Receipt Date: 20220802
  Transmission Date: 20221026
  Serious: Yes (Hospitalization)
  Sender: FDA-Public Use
  Company Number: None

PATIENT
  Age: 32 Year
  Sex: Male
  Weight: 60 kg

DRUGS (1)
  1. INFLIXIMAB [Suspect]
     Active Substance: INFLIXIMAB
     Indication: Crohn^s disease
     Dosage: FLIXABI 5 MG / KG EVERY 8 WEEKS (LAST INFUSION ON 25.10.2021)
     Route: 042
     Dates: start: 20210306, end: 20211025

REACTIONS (2)
  - Ileocaecal resection [Recovered/Resolved]
  - Therapeutic product effect decreased [Recovered/Resolved]

NARRATIVE: CASE EVENT DATE: 20210306
